FAERS Safety Report 14051580 (Version 10)
Quarter: 2020Q3

REPORT INFORMATION
  Report Type: Spontaneous
  Country: US (occurrence: US)
  Receive Date: 20171005
  Receipt Date: 20200810
  Transmission Date: 20201102
  Serious: Yes (Hospitalization, Other)
  Sender: FDA-Public Use
  Company Number: US-PFIZER INC-2017425962

PATIENT
  Age: 73 Year
  Sex: Female
  Weight: 92 kg

DRUGS (6)
  1. LYRICA [Suspect]
     Active Substance: PREGABALIN
     Indication: FIBROMYALGIA
     Dosage: UNK
  2. LYRICA [Suspect]
     Active Substance: PREGABALIN
     Indication: BREAST PAIN
  3. TRAMADOL. [Concomitant]
     Active Substance: TRAMADOL
     Indication: PAIN
     Dosage: 50 MG, AS NEEDED
  4. NAPROXEN. [Concomitant]
     Active Substance: NAPROXEN
     Indication: PAIN
     Dosage: 500 MG, 2X/DAY
  5. LYRICA [Suspect]
     Active Substance: PREGABALIN
     Indication: PAIN
     Dosage: 100 MG, 4X/DAY
     Route: 048
  6. LYRICA [Suspect]
     Active Substance: PREGABALIN
     Indication: BACK PAIN
     Dosage: 100 MG, 4X/DAY
     Route: 048

REACTIONS (13)
  - Therapeutic product effect incomplete [Unknown]
  - Vision blurred [Not Recovered/Not Resolved]
  - Musculoskeletal discomfort [Unknown]
  - Mental disorder [Recovered/Resolved]
  - Back pain [Not Recovered/Not Resolved]
  - Arthritis [Unknown]
  - Vascular pain [Not Recovered/Not Resolved]
  - Asthenia [Unknown]
  - Memory impairment [Not Recovered/Not Resolved]
  - Hypoacusis [Recovered/Resolved]
  - Decreased appetite [Recovered/Resolved]
  - Stress [Unknown]
  - Sciatica [Not Recovered/Not Resolved]

NARRATIVE: CASE EVENT DATE: 2016
